FAERS Safety Report 17211805 (Version 2)
Quarter: 2020Q1

REPORT INFORMATION
  Report Type: Spontaneous
  Country: IE (occurrence: IE)
  Receive Date: 20191230
  Receipt Date: 20200108
  Transmission Date: 20200409
  Serious: Yes (Other)
  Sender: FDA-Public Use
  Company Number: IE-SA-2019SA357584

PATIENT
  Sex: Male

DRUGS (1)
  1. TUBERCULIN PPD [Suspect]
     Active Substance: TUBERCULIN PURIFIED PROTEIN DERIVATIVE
     Indication: BLADDER NEOPLASM
     Dosage: BLADDER ADMINISTRATION - BATCH EXPIRY EXPIRY 09/2020
     Route: 043
     Dates: start: 201904

REACTIONS (7)
  - Tuberculosis [Recovering/Resolving]
  - Mycobacterium tuberculosis complex test positive [Recovering/Resolving]
  - Mycobacterial infection [Recovering/Resolving]
  - Abscess limb [Recovering/Resolving]
  - Wrong product administered [Unknown]
  - Acid fast bacilli infection [Recovering/Resolving]
  - Suspected product contamination [Unknown]

NARRATIVE: CASE EVENT DATE: 201911
